FAERS Safety Report 7376723-1 (Version None)
Quarter: 2011Q1

REPORT INFORMATION
  Report Type: 
  Country: None (occurrence: None)
  Receive Date: 20110325
  Receipt Date: 20110317
  Transmission Date: 20110831
  Serious: Yes (Other)
  Sender: FDA-Public Use
  Company Number: JP-ASTRAZENECA-2011SE15346

PATIENT

DRUGS (2)
  1. XYLOCAINE [Suspect]
     Route: 065
  2. XYLOCAINE [Suspect]
     Dosage: 5-6 SPRAYS/1 TIME 5-6 TIMES/DAY

REACTIONS (2)
  - CARDIAC FAILURE [None]
  - OVERDOSE [None]
